FAERS Safety Report 7680435-4 (Version None)
Quarter: 2011Q3

REPORT INFORMATION
  Report Type: 
  Country: None (occurrence: None)
  Receive Date: 20110812
  Receipt Date: 20110805
  Transmission Date: 20111222
  Serious: Yes (Hospitalization, Other)
  Sender: FDA-Public Use
  Company Number: AU-BAYER-2011-068910

PATIENT
  Age: 18 Year
  Sex: Female

DRUGS (3)
  1. YAZ [Suspect]
     Indication: PREMENSTRUAL SYNDROME
  2. YAZ [Suspect]
     Indication: ACNE
     Dosage: 1 DF, QD
     Route: 048
     Dates: start: 20110501, end: 20110723
  3. YAZ [Suspect]
     Indication: DYSMENORRHOEA

REACTIONS (2)
  - PULMONARY EMBOLISM [None]
  - PNEUMONIA [None]
